FAERS Safety Report 8953714 (Version 1)
Quarter: 2012Q4

REPORT INFORMATION
  Report Type: 
  Country: NL (occurrence: NL)
  Receive Date: 20121206
  Receipt Date: 20121206
  Transmission Date: 20130627
  Serious: Yes (Death, Hospitalization)
  Sender: FDA-Public Use
  Company Number: NL-MYLANLABS-2012S1024507

PATIENT
  Age: 53 Year
  Sex: Male

DRUGS (3)
  1. VALPROIC ACID [Suspect]
     Indication: EPILEPSY
     Dosage: 600mg four times a day
     Route: 065
  2. INSULIN [Concomitant]
     Indication: TYPE 2 DIABETES MELLITUS
     Dosage: Once daily
     Route: 058
  3. ESOMEPRAZOLE [Concomitant]
     Dosage: 40mg
     Route: 065

REACTIONS (3)
  - Acute hepatic failure [Fatal]
  - Multi-organ failure [Fatal]
  - Toxicity to various agents [Fatal]
